FAERS Safety Report 9746748 (Version 1)
Quarter: 2013Q4

REPORT INFORMATION
  Report Type: Spontaneous
  Country: HR (occurrence: HR)
  Receive Date: 20131211
  Receipt Date: 20131211
  Transmission Date: 20140711
  Serious: Yes (Life-Threatening, Hospitalization)
  Sender: FDA-Public Use
  Company Number: HR-TEVA-448058ISR

PATIENT
  Age: 80 Year
  Sex: Female
  Weight: 50 kg

DRUGS (8)
  1. TEGRETOL [Suspect]
     Dosage: 200; 1X1
     Route: 048
     Dates: start: 201210, end: 20131103
  2. FEVARIN [Suspect]
     Indication: DEPRESSION
     Dosage: 100 MG; 1X1
     Route: 048
     Dates: start: 201210, end: 20131103
  3. MARTEFARIN [Concomitant]
     Route: 048
  4. ISOPTIN [Concomitant]
     Route: 048
  5. LANITOP [Concomitant]
     Route: 048
  6. TRITACE [Concomitant]
     Route: 048
  7. FURSEMID [Concomitant]
     Route: 048
  8. MATRIFEN [Concomitant]
     Route: 062

REACTIONS (4)
  - Haemoptysis [Recovered/Resolved]
  - Lung infiltration [Recovering/Resolving]
  - Respiratory failure [Recovered/Resolved]
  - Pyrexia [Recovered/Resolved]
